FAERS Safety Report 7410374-5 (Version None)
Quarter: 2011Q2

REPORT INFORMATION
  Report Type: 
  Country: None (occurrence: None)
  Receive Date: 20110412
  Receipt Date: 20110404
  Transmission Date: 20111010
  Serious: Yes (Death)
  Sender: FDA-Public Use
  Company Number: US-WATSON-2011-04750

PATIENT
  Sex: Male
  Weight: 92.063 kg

DRUGS (1)
  1. RAPAFLO [Suspect]
     Indication: POLLAKIURIA
     Dosage: 8 MG, DAILY (USED PRODUCT FOR LESS THAN 90 DAYS)
     Route: 048
     Dates: end: 20110301

REACTIONS (2)
  - MULTI-ORGAN FAILURE [None]
  - NEOPLASM MALIGNANT [None]
